FAERS Safety Report 10404117 (Version 3)
Quarter: 2014Q4

REPORT INFORMATION
  Report Type: Spontaneous
  Country: BR (occurrence: BR)
  Receive Date: 20140823
  Receipt Date: 20141027
  Transmission Date: 20150528
  Serious: Yes (Other)
  Sender: FDA-Public Use
  Company Number: BR-ABBVIE-14K-020-1261094-00

PATIENT
  Age: 44 Year
  Sex: Male

DRUGS (2)
  1. HUMIRA [Suspect]
     Active Substance: ADALIMUMAB
     Indication: ANKYLOSING SPONDYLITIS
     Route: 058
     Dates: start: 201401
  2. CEPHALEXIN. [Suspect]
     Active Substance: CEPHALEXIN
     Indication: SKIN LESION
     Route: 065

REACTIONS (7)
  - Vasculitis [Recovering/Resolving]
  - Wound haemorrhage [Recovering/Resolving]
  - Pain of skin [Recovered/Resolved]
  - Wound necrosis [Recovering/Resolving]
  - Rash papular [Recovering/Resolving]
  - Dermatitis bullous [Recovering/Resolving]
  - Drug ineffective [Unknown]

NARRATIVE: CASE EVENT DATE: 2014
